FAERS Safety Report 5886287-7 (Version None)
Quarter: 2008Q3

REPORT INFORMATION
  Report Type: 
  Country: None (occurrence: None)
  Receive Date: 20080917
  Receipt Date: 20080908
  Transmission Date: 20090109
  Serious: Yes (Hospitalization)
  Sender: FDA-Public Use
  Company Number: A0729675A

PATIENT
  Age: 68 Year
  Sex: Male
  Weight: 113.6 kg

DRUGS (6)
  1. AVANDIA [Suspect]
     Dosage: 8MG PER DAY
     Route: 048
     Dates: start: 20030922, end: 20070515
  2. ADVAIR DISKUS 100/50 [Concomitant]
  3. ALEVE [Concomitant]
  4. AMARYL [Concomitant]
  5. DOXAZOSIN MESYLATE [Concomitant]
  6. METFORMIN [Concomitant]

REACTIONS (3)
  - ATRIAL FIBRILLATION [None]
  - CARDIAC FAILURE CONGESTIVE [None]
  - CAROTID ARTERY STENOSIS [None]
